FAERS Safety Report 11233990 (Version 1)
Quarter: 2015Q3

REPORT INFORMATION
  Report Type: Spontaneous
  Country: US (occurrence: US)
  Receive Date: 20150702
  Receipt Date: 20150702
  Transmission Date: 20151125
  Serious: Yes (Death, Other)
  Sender: FDA-Public Use
  Company Number: US-TEVA-573561USA

PATIENT
  Age: 26 Year
  Sex: Male

DRUGS (2)
  1. LOPERAMIDE [Suspect]
     Active Substance: LOPERAMIDE
     Dosage: 800 MILLIGRAM DAILY; 200 2MG CAPSULES TWO TIMES PER DAY
     Route: 048
  2. LOPERAMIDE [Suspect]
     Active Substance: LOPERAMIDE
     Indication: DRUG ABUSE
     Dosage: 400 MILLIGRAM DAILY; 100 2MG CAPSULES 2 TIMES PER DAY FOR MORE THAN 18 MONTHS
     Route: 048

REACTIONS (12)
  - Drug abuse [Unknown]
  - Drug dependence [Unknown]
  - Drug withdrawal syndrome [Unknown]
  - Suicide attempt [Fatal]
  - Hyperhidrosis [Unknown]
  - Anxiety [Unknown]
  - Lacrimation increased [Unknown]
  - Tremor [Unknown]
  - Intentional overdose [Fatal]
  - Yawning [Unknown]
  - Vomiting [Unknown]
  - Diarrhoea [Unknown]
